FAERS Safety Report 17482720 (Version 1)
Quarter: 2020Q1

REPORT INFORMATION
  Report Type: Spontaneous
  Country: US (occurrence: US)
  Receive Date: 20200218
  Receipt Date: 20200218
  Transmission Date: 20200409
  Serious: No
  Sender: FDA-Public Use
  Company Number: None

PATIENT
  Age: 53 Year
  Sex: Male

DRUGS (4)
  1. CITRACAL [Concomitant]
     Active Substance: CALCIUM CITRATE
  2. ZYTIGA [Suspect]
     Active Substance: ABIRATERONE ACETATE
     Indication: PROSTATE CANCER
     Route: 048
  3. OXYMETAZOLINE [Concomitant]
     Active Substance: OXYMETAZOLINE
  4. PROCHLORPERAZINE. [Concomitant]
     Active Substance: PROCHLORPERAZINE

REACTIONS (5)
  - Balance disorder [None]
  - Dysarthria [None]
  - Memory impairment [None]
  - Fall [None]
  - Confusional state [None]
